FAERS Safety Report 7068849-7 (Version None)
Quarter: 2010Q4

REPORT INFORMATION
  Report Type: 
  Country: None (occurrence: None)
  Receive Date: 20101027
  Receipt Date: 20101027
  Transmission Date: 20110411
  Serious: No
  Sender: FDA-Public Use
  Company Number: None

PATIENT
  Age: 39 Year
  Sex: Female
  Weight: 68.0396 kg

DRUGS (4)
  1. OXYCONTIN [Suspect]
     Indication: COMPLEX REGIONAL PAIN SYNDROME
     Dosage: 40MG 3 PER DAY PO
     Route: 048
     Dates: start: 20100927, end: 20101022
  2. OXYCONTIN [Suspect]
     Indication: FIBROMYALGIA
     Dosage: 40MG 3 PER DAY PO
     Route: 048
     Dates: start: 20100927, end: 20101022
  3. OXYCONTIN [Suspect]
     Indication: MULTIPLE INJURIES
     Dosage: 40MG 3 PER DAY PO
     Route: 048
     Dates: start: 20100927, end: 20101022
  4. OXYCONTIN [Suspect]
     Indication: PAIN MANAGEMENT
     Dosage: 40MG 3 PER DAY PO
     Route: 048
     Dates: start: 20100927, end: 20101022

REACTIONS (8)
  - ABDOMINAL PAIN UPPER [None]
  - DRUG EFFECT DECREASED [None]
  - GASTROINTESTINAL DISORDER [None]
  - HEADACHE [None]
  - INADEQUATE ANALGESIA [None]
  - MOBILITY DECREASED [None]
  - PRODUCT FORMULATION ISSUE [None]
  - QUALITY OF LIFE DECREASED [None]
